FAERS Safety Report 6147182-1 (Version None)
Quarter: 2009Q2

REPORT INFORMATION
  Report Type: 
  Country: None (occurrence: None)
  Receive Date: 20090403
  Receipt Date: 20090324
  Transmission Date: 20091009
  Serious: Yes (Life-Threatening, Hospitalization, Other)
  Sender: FDA-Public Use
  Company Number: 2009AP001109

PATIENT
  Age: 75 Year
  Sex: Female
  Weight: 83.2 kg

DRUGS (19)
  1. LOVASTATIN [Suspect]
     Indication: HYPERLIPIDAEMIA
     Dosage: 40 MG; HS;
  2. SITAGLIPTIN PHOSPHATE [Suspect]
     Indication: DIABETES MELLITUS
     Dosage: 100 MG; QD;
  3. DILTIAZEM HYDROCHLORIDE [Concomitant]
  4. GLIMEPIRIDE [Concomitant]
  5. LEVOTHYROXINE SODIUM [Concomitant]
  6. HYDROCHLOROTHIAZIDE [Concomitant]
  7. METOCLOPRAMIDE [Concomitant]
  8. ALENDRONATE SODIUM [Concomitant]
  9. ESOMEPRAZOLE MAGNESIUM [Concomitant]
  10. TIOTROPIUM [Concomitant]
  11. FOLIC ACID [Concomitant]
  12. CYANOCOBALAMIN [Concomitant]
  13. PYRIDOXINE [Concomitant]
  14. HYDROMORPHONE HCL [Concomitant]
  15. METHOCARBAMOL [Concomitant]
  16. DEXTROPROPOXYPHENE [Concomitant]
  17. PARACETAMOL [Concomitant]
  18. ROSIGLITAZONE [Concomitant]
  19. PIOGLITAZONE [Concomitant]

REACTIONS (7)
  - ANXIETY [None]
  - BACK PAIN [None]
  - DRUG INTERACTION [None]
  - FALL [None]
  - HYPERTENSION [None]
  - RHABDOMYOLYSIS [None]
  - WEIGHT DECREASED [None]
